FAERS Safety Report 11766890 (Version 1)
Quarter: 2015Q4

REPORT INFORMATION
  Report Type: Spontaneous
  Country: IT (occurrence: IT)
  Receive Date: 20151123
  Receipt Date: 20151123
  Transmission Date: 20160304
  Serious: Yes (Life-Threatening, Hospitalization, Other)
  Sender: FDA-Public Use
  Company Number: IT-ELI_LILLY_AND_COMPANY-IT201511005204

PATIENT
  Age: 70 Year
  Sex: Female

DRUGS (21)
  1. BRILIQUE [Suspect]
     Active Substance: TICAGRELOR
     Indication: PRODUCT USED FOR UNKNOWN INDICATION
     Dosage: 90 MG, EACH MORNING
     Route: 048
  2. QUETIAPINE [Suspect]
     Active Substance: QUETIAPINE
     Indication: PRODUCT USED FOR UNKNOWN INDICATION
     Dosage: 25 MG, BEFORE SLEEP
     Route: 048
     Dates: start: 201503
  3. RIVOTRIL [Suspect]
     Active Substance: CLONAZEPAM
     Dosage: 15 GTT, BEFORE SLEEP
     Route: 065
  4. LORAZEPAM. [Suspect]
     Active Substance: LORAZEPAM
     Indication: PRODUCT USED FOR UNKNOWN INDICATION
     Dosage: 0.75 MG, AT 12AM
     Route: 065
  5. LORAZEPAM. [Suspect]
     Active Substance: LORAZEPAM
     Dosage: 0.75 MG, AT 17:30
     Route: 065
  6. PANTOPRAZOLE [Suspect]
     Active Substance: PANTOPRAZOLE SODIUM
     Indication: PRODUCT USED FOR UNKNOWN INDICATION
     Dosage: 20 MG, EACH MORNING
     Route: 065
  7. RIVOTRIL [Suspect]
     Active Substance: CLONAZEPAM
     Dosage: 10 GTT, AT NIGHT
     Route: 065
  8. TRITTICO [Suspect]
     Active Substance: TRAZODONE HYDROCHLORIDE
     Dosage: 10 GTT, BEFORE SLEEP
     Route: 065
     Dates: start: 201503
  9. TRIAZOLAM. [Suspect]
     Active Substance: TRIAZOLAM
     Indication: PRODUCT USED FOR UNKNOWN INDICATION
     Dosage: 0.25 MG, AT NIGHT
  10. LOPRESSOR [Suspect]
     Active Substance: METOPROLOL TARTRATE
     Indication: PRODUCT USED FOR UNKNOWN INDICATION
     Dosage: 25 MG, EACH MORNING
     Route: 065
  11. CARDIOASPIRIN [Suspect]
     Active Substance: ASPIRIN
     Indication: PRODUCT USED FOR UNKNOWN INDICATION
     Dosage: UNK, AFTER LUNCH
     Route: 065
  12. LORAZEPAM. [Suspect]
     Active Substance: LORAZEPAM
     Dosage: 1 MG, BEFORE SLEEP
     Route: 065
  13. LORAZEPAM. [Suspect]
     Active Substance: LORAZEPAM
     Dosage: 0.9 MG, AT NIGHT
  14. OLANZAPINE. [Suspect]
     Active Substance: OLANZAPINE
     Indication: PRODUCT USED FOR UNKNOWN INDICATION
     Dosage: 5 MG, BEFORE SLEEP
     Route: 065
     Dates: start: 201501, end: 201503
  15. OLANZAPINE. [Suspect]
     Active Substance: OLANZAPINE
     Dosage: 5 MG, AT NIGHT
     Route: 065
     Dates: start: 201503
  16. RIVOTRIL [Suspect]
     Active Substance: CLONAZEPAM
     Indication: PRODUCT USED FOR UNKNOWN INDICATION
     Dosage: 18 GTT, BEFORE SLEEP
     Route: 065
  17. TRITTICO [Suspect]
     Active Substance: TRAZODONE HYDROCHLORIDE
     Dosage: 15 GTT, BEFORE SLEEP
     Route: 065
     Dates: end: 201503
  18. TIROSINT [Suspect]
     Active Substance: LEVOTHYROXINE SODIUM
     Indication: HYPOTHYROIDISM
     Dosage: 25 MG, UNKNOWN
     Route: 065
  19. BRILIQUE [Suspect]
     Active Substance: TICAGRELOR
     Dosage: 90 MG, EACH EVENING
     Route: 065
  20. ATORVASTATIN [Suspect]
     Active Substance: ATORVASTATIN
     Indication: PRODUCT USED FOR UNKNOWN INDICATION
     Dosage: 40 MG, EACH EVENING
     Route: 065
  21. TRITTICO [Suspect]
     Active Substance: TRAZODONE HYDROCHLORIDE
     Indication: PRODUCT USED FOR UNKNOWN INDICATION
     Dosage: 13 GTT, AT NIGHT
     Route: 065
     Dates: start: 201501

REACTIONS (10)
  - Dyspnoea [Unknown]
  - Suicide attempt [Unknown]
  - Weight increased [Unknown]
  - Electrocardiogram QT prolonged [Unknown]
  - Myocardial ischaemia [Unknown]
  - Feeling cold [Unknown]
  - Hypothyroidism [Unknown]
  - Discomfort [Unknown]
  - Electrocardiogram T wave inversion [Unknown]
  - Fatigue [Unknown]
